FAERS Safety Report 5361323-5 (Version None)
Quarter: 2007Q2

REPORT INFORMATION
  Report Type: 
  Country: None (occurrence: None)
  Receive Date: 20070612
  Receipt Date: 20070606
  Transmission Date: 20071010
  Serious: Yes (Disabling, Other)
  Sender: FDA-Public Use
  Company Number: 16718

PATIENT
  Age: 25 Year
  Sex: Male

DRUGS (7)
  1. BLEOMYCIN [Suspect]
     Indication: TESTIS CANCER
     Dosage: 20 IU PER_CYCLE
  2. ETOPOSIDE [Suspect]
     Indication: TESTIS CANCER
     Dosage: 165 MG/M2 PER_CYCLE
  3. ETOPOSIDE [Suspect]
     Indication: TESTIS CANCER
  4. CISPLATIN [Suspect]
     Indication: TESTIS CANCER
     Dosage: 40 MG/M2 PER_CYCLE
  5. CISPLATIN [Suspect]
     Indication: TESTIS CANCER
  6. DEXAMETHASONE 0.5MG TAB [Suspect]
     Indication: PROPHYLAXIS OF NAUSEA AND VOMITING
     Dosage: 8 MG PER_CYCLE PO
     Route: 048
  7. DEXAMETHASONE 0.5MG TAB [Suspect]
     Indication: PROPHYLAXIS OF NAUSEA AND VOMITING
     Dosage: 4 MG PER_CYCLE PO
     Route: 048

REACTIONS (2)
  - BONE SWELLING [None]
  - OSTEONECROSIS [None]
